FAERS Safety Report 25420476 (Version 1)
Quarter: 2025Q2

REPORT INFORMATION
  Report Type: Spontaneous
  Country: ES (occurrence: ES)
  Receive Date: 20250611
  Receipt Date: 20250611
  Transmission Date: 20250716
  Serious: Yes (Other)
  Sender: AUROBINDO
  Company Number: ES-ELI_LILLY_AND_COMPANY-ES202405015588

PATIENT
  Age: 57 Year
  Sex: Female

DRUGS (3)
  1. LETROZOLE [Suspect]
     Active Substance: LETROZOLE
     Indication: Breast cancer
     Route: 065
     Dates: start: 20240507
  2. ABEMACICLIB [Suspect]
     Active Substance: ABEMACICLIB
     Indication: Breast cancer
     Dosage: 300 MILLIGRAM, ONCE A DAY (150 MG TWO TIMES A DAY)
     Route: 048
  3. ABEMACICLIB [Suspect]
     Active Substance: ABEMACICLIB
     Dosage: 300 MILLIGRAM, ONCE A DAY (150 MG TWO TIMES A DAY)
     Route: 048
     Dates: start: 20240507

REACTIONS (19)
  - Bacterial diarrhoea [Recovered/Resolved]
  - Pruritus [Recovering/Resolving]
  - Gastrointestinal disorder [Not Recovered/Not Resolved]
  - Discomfort [Unknown]
  - Depressed mood [Recovering/Resolving]
  - Haemorrhoids [Unknown]
  - Chills [Recovering/Resolving]
  - Hot flush [Recovering/Resolving]
  - Diarrhoea [Recovered/Resolved]
  - Constipation [Recovered/Resolved]
  - Haemorrhoidal haemorrhage [Recovered/Resolved]
  - Dyschezia [Recovered/Resolved]
  - Fatigue [Recovering/Resolving]
  - Red blood cell count decreased [Recovering/Resolving]
  - Onychoclasis [Recovering/Resolving]
  - Dry skin [Recovering/Resolving]
  - Abdominal pain upper [Recovering/Resolving]
  - Dyspepsia [Recovering/Resolving]
  - Rash pruritic [Recovering/Resolving]

NARRATIVE: CASE EVENT DATE: 20240509
